FAERS Safety Report 11769734 (Version 2)
Quarter: 2015Q4

REPORT INFORMATION
  Report Type: Spontaneous
  Country: US (occurrence: US)
  Receive Date: 20151123
  Receipt Date: 20151204
  Transmission Date: 20160304
  Serious: No
  Sender: FDA-Public Use
  Company Number: US-WATSON-2015-24276

PATIENT

DRUGS (1)
  1. CLONIDINE. [Suspect]
     Active Substance: CLONIDINE
     Indication: PRODUCT USED FOR UNKNOWN INDICATION
     Dosage: 0.1 MG/DAY
     Route: 062

REACTIONS (3)
  - Application site pruritus [Unknown]
  - Application site dermatitis [Unknown]
  - Application site erythema [Unknown]
